FAERS Safety Report 9933838 (Version 2)
Quarter: 2014Q1

REPORT INFORMATION
  Report Type: Report from Study
  Country: US (occurrence: US)
  Receive Date: 20140228
  Receipt Date: 20140228
  Transmission Date: 20141002
  Serious: No
  Sender: FDA-Public Use
  Company Number: US-MYLANLABS-2013S1016208

PATIENT
  Age: 14 Year
  Sex: Female
  Weight: 64.86 kg

DRUGS (4)
  1. AMNESTEEM CAPSULES [Suspect]
     Indication: ACNE
     Dosage: THREE DAYS A WEEK
     Route: 048
     Dates: start: 20130403, end: 20130717
  2. AMNESTEEM CAPSULES [Suspect]
     Indication: ACNE
     Dosage: FOUR DAYS A WEEK
     Route: 048
     Dates: start: 20130403, end: 20130717
  3. ORTHO NOVUM 1/35 [Suspect]
     Dates: start: 2013
  4. KEFLEX [Concomitant]
     Indication: ABSCESS
     Dosage: STARTED SOMETIME AFTER 07-JUL-2013
     Dates: start: 201307, end: 201307

REACTIONS (5)
  - Depression [Recovered/Resolved]
  - Headache [Recovered/Resolved]
  - Dizziness [Recovered/Resolved]
  - Epistaxis [Recovered/Resolved]
  - Blood triglycerides abnormal [Recovered/Resolved]
